FAERS Safety Report 12378059 (Version 1)
Quarter: 2016Q2

REPORT INFORMATION
  Report Type: Spontaneous
  Country: DK (occurrence: DK)
  Receive Date: 20160517
  Receipt Date: 20160517
  Transmission Date: 20160815
  Serious: Yes (Other)
  Sender: FDA-Public Use
  Company Number: ALCN2016DK003223

PATIENT
  Age: 41 Year
  Sex: Male

DRUGS (1)
  1. TOBRADEX [Suspect]
     Active Substance: DEXAMETHASONE\TOBRAMYCIN
     Indication: EYE INFECTION
     Dosage: 1 GTT, TID
     Route: 047
     Dates: start: 20141024, end: 20141107

REACTIONS (7)
  - Fatigue [Not Recovered/Not Resolved]
  - Vision blurred [Not Recovered/Not Resolved]
  - Chorioretinopathy [Recovered/Resolved]
  - Vision blurred [Recovered/Resolved]
  - Blepharospasm [Not Recovered/Not Resolved]
  - Headache [Not Recovered/Not Resolved]
  - Tunnel vision [Recovered/Resolved]

NARRATIVE: CASE EVENT DATE: 201410
